FAERS Safety Report 8328121-1 (Version None)
Quarter: 2012Q2

REPORT INFORMATION
  Report Type: 
  Country: None (occurrence: None)
  Receive Date: 20120502
  Receipt Date: 20120426
  Transmission Date: 20120825
  Serious: Yes (Disabling)
  Sender: FDA-Public Use
  Company Number: PHHY2012JP012042

PATIENT
  Sex: Male
  Weight: 60 kg

DRUGS (4)
  1. OXYCONTIN [Concomitant]
     Indication: METASTATIC RENAL CELL CARCINOMA
     Dosage: 30 MG, UNK
     Route: 048
     Dates: start: 20110112, end: 20110310
  2. AFINITOR [Suspect]
     Dosage: 10 MG DAILY
     Route: 048
     Dates: start: 20110201, end: 20110310
  3. AFINITOR [Suspect]
     Indication: RENAL CELL CARCINOMA
     Dosage: 10 MG DAILY
     Route: 048
     Dates: start: 20101014, end: 20110103
  4. LOXONIN [Concomitant]
     Indication: METASTATIC RENAL CELL CARCINOMA
     Dosage: 180 MG, UNK
     Route: 048
     Dates: start: 20110112, end: 20110310

REACTIONS (4)
  - NEOPLASM MALIGNANT [None]
  - NEOPLASM PROGRESSION [None]
  - METASTASES TO SPINE [None]
  - SPINAL CORD INJURY [None]
